FAERS Safety Report 11979667 (Version 4)
Quarter: 2016Q1

REPORT INFORMATION
  Report Type: Spontaneous
  Country: JP (occurrence: JP)
  Receive Date: 20160129
  Receipt Date: 20160317
  Transmission Date: 20160526
  Serious: Yes (Life-Threatening, Hospitalization, Other)
  Sender: FDA-Public Use
  Company Number: PHHY2016JP011331

PATIENT
  Age: 85 Year
  Sex: Male

DRUGS (6)
  1. STARSIS [Suspect]
     Active Substance: NATEGLINIDE
     Indication: TYPE 2 DIABETES MELLITUS
     Dosage: 90 MG, TID
     Route: 048
     Dates: start: 20100705, end: 20160115
  2. MAGLAX [Concomitant]
     Active Substance: MAGNESIUM OXIDE
     Indication: CONSTIPATION
     Dosage: 1.8 G, QD
     Route: 048
     Dates: start: 20140117
  3. FEBURIC [Concomitant]
     Active Substance: FEBUXOSTAT
     Indication: HYPERURICAEMIA
     Dosage: 10 MG, QD
     Route: 048
     Dates: start: 20130731
  4. LOTRIGA [Concomitant]
     Active Substance: OMEGA-3-ACID ETHYL ESTERS
     Indication: PERIPHERAL ARTERIAL OCCLUSIVE DISEASE
     Dosage: 2 G, QD
     Route: 048
     Dates: start: 20150130
  5. ACTOS [Suspect]
     Active Substance: PIOGLITAZONE HYDROCHLORIDE
     Indication: TYPE 2 DIABETES MELLITUS
     Dosage: 7.5 MG, QD
     Route: 048
     Dates: start: 20100705, end: 20160115
  6. LAC-B [Concomitant]
     Active Substance: BIFIDOBACTERIUM SPP.
     Indication: CONSTIPATION
     Dosage: 2 G, QD
     Route: 048
     Dates: start: 20140117

REACTIONS (2)
  - Malaise [Unknown]
  - Hyperkalaemia [Recovering/Resolving]

NARRATIVE: CASE EVENT DATE: 20160115
